FAERS Safety Report 13554534 (Version 1)
Quarter: 2017Q2

REPORT INFORMATION
  Report Type: Spontaneous
  Country: US (occurrence: US)
  Receive Date: 20170517
  Receipt Date: 20170517
  Transmission Date: 20170830
  Serious: No
  Sender: FDA-Public Use
  Company Number: US-PFIZER INC-2017215366

PATIENT
  Age: 74 Year
  Sex: Male

DRUGS (1)
  1. PROTONIX [Suspect]
     Active Substance: PANTOPRAZOLE SODIUM
     Indication: PROPHYLAXIS
     Dosage: UNKNOWN STRENGTH, ONCE A DAY
     Dates: start: 20170503

REACTIONS (2)
  - Weight increased [Unknown]
  - Product use in unapproved indication [Unknown]
